FAERS Safety Report 8168134-6 (Version None)
Quarter: 2012Q1

REPORT INFORMATION
  Report Type: 
  Country: None (occurrence: None)
  Receive Date: 20120103
  Receipt Date: 20111103
  Transmission Date: 20120608
  Serious: No
  Sender: FDA-Public Use
  Company Number: AE-2011-003077

PATIENT
  Age: 55 Year
  Sex: Female
  Weight: 96.6162 kg

DRUGS (13)
  1. RIBAVIRIN [Concomitant]
  2. ZINC (ZINC) [Concomitant]
  3. METFORMIN HCL [Concomitant]
  4. ONE A DAY VITAMIN (MULTIVITAMINS) [Concomitant]
  5. CALCIUM CARBONATE [Concomitant]
  6. ASCORBIC ACID [Concomitant]
  7. VITAMIN D [Concomitant]
  8. PEGASYS [Concomitant]
  9. MAGNESIUM (MAGNESIUM) [Concomitant]
  10. INCIVEK [Suspect]
     Dosage: 2250 MG (750 MG, 3 IN 1 D), ORAL
     Route: 048
     Dates: start: 20111102
  11. CLONIDINE [Concomitant]
  12. PERCOCET [Concomitant]
  13. GLIMEPIRIDE [Concomitant]

REACTIONS (1)
  - VOMITING [None]
